FAERS Safety Report 6789618-9 (Version None)
Quarter: 2010Q2

REPORT INFORMATION
  Report Type: 
  Country: None (occurrence: None)
  Receive Date: 20100624
  Receipt Date: 20100615
  Transmission Date: 20101027
  Serious: No
  Sender: FDA-Public Use
  Company Number: US-BIOGENIDEC-2010BI020616

PATIENT
  Sex: Male

DRUGS (4)
  1. TYSABRI [Suspect]
     Indication: MULTIPLE SCLEROSIS
     Route: 042
     Dates: start: 20070411, end: 20090305
  2. TYSABRI [Suspect]
     Route: 042
     Dates: start: 20091223
  3. COPAXONE [Concomitant]
     Indication: MULTIPLE SCLEROSIS
  4. NOVANTRONE [Concomitant]
     Indication: MULTIPLE SCLEROSIS

REACTIONS (7)
  - BALANCE DISORDER [None]
  - DRUG EFFECT DECREASED [None]
  - GAIT DISTURBANCE [None]
  - NASOPHARYNGITIS [None]
  - SINUSITIS [None]
  - STRESS [None]
  - VIRAL INFECTION [None]
